FAERS Safety Report 14454329 (Version 2)
Quarter: 2018Q1

REPORT INFORMATION
  Report Type: Spontaneous
  Country: US (occurrence: US)
  Receive Date: 20180129
  Receipt Date: 20180209
  Transmission Date: 20180509
  Serious: Yes (Other)
  Sender: FDA-Public Use
  Company Number: US-PFIZER INC-2018030662

PATIENT
  Age: 52 Year
  Sex: Female

DRUGS (5)
  1. GABAPENTIN. [Suspect]
     Active Substance: GABAPENTIN
     Dosage: 100 MG, 3X/DAY
     Route: 048
     Dates: start: 20171102
  2. GABAPENTIN. [Suspect]
     Active Substance: GABAPENTIN
     Dosage: 100 MG, 2X/DAY (ONE 100 MG CAPSULE AT 1600 AND THEN ONE 100 MG CAPSULE AT BEDTIME)
  3. GABAPENTIN. [Suspect]
     Active Substance: GABAPENTIN
     Dosage: 100 MG, UNK
     Dates: start: 201711
  4. GABAPENTIN. [Suspect]
     Active Substance: GABAPENTIN
     Dosage: 100 MG, 2X/DAY (100 MG CAPSULE AT 1600 AND THEN ONE 100 MG CAPSULE AT BEDTIME)
     Dates: start: 201712
  5. GABAPENTIN. [Suspect]
     Active Substance: GABAPENTIN
     Indication: NEUROPATHY PERIPHERAL
     Dosage: 300 MG, 3X/DAY
     Route: 048
     Dates: start: 201611, end: 201701

REACTIONS (5)
  - Skin ulcer [Unknown]
  - Somnolence [Not Recovered/Not Resolved]
  - Narcolepsy [Recovered/Resolved]
  - Drug ineffective for unapproved indication [Unknown]
  - Fall [Unknown]

NARRATIVE: CASE EVENT DATE: 201611
